FAERS Safety Report 8463744-0 (Version None)
Quarter: 2012Q2

REPORT INFORMATION
  Report Type: 
  Country: None (occurrence: None)
  Receive Date: 20120625
  Receipt Date: 20120620
  Transmission Date: 20120825
  Serious: Yes (Hospitalization)
  Sender: FDA-Public Use
  Company Number: PHHY2012AU053162

PATIENT
  Sex: Male

DRUGS (2)
  1. ZOLEDRONOC ACID [Suspect]
     Route: 042
     Dates: start: 20110630
  2. ZOLEDRONOC ACID [Suspect]
     Route: 042
     Dates: start: 20100712

REACTIONS (1)
  - PLEURAL EFFUSION [None]
